FAERS Safety Report 15842567 (Version 2)
Quarter: 2019Q1

REPORT INFORMATION
  Report Type: Spontaneous
  Country: US (occurrence: US)
  Receive Date: 20190118
  Receipt Date: 20190219
  Transmission Date: 20190417
  Serious: Yes (Other)
  Sender: FDA-Public Use
  Company Number: US-MYLANLABS-2019M1003273

PATIENT
  Age: 21 Year
  Sex: Female
  Weight: 137 kg

DRUGS (18)
  1. AMNESTEEM [Suspect]
     Active Substance: ISOTRETINOIN
     Indication: ACNE
     Dosage: UNK
     Route: 065
     Dates: start: 20180512, end: 20181126
  2. ISOTRETINOIN. [Suspect]
     Active Substance: ISOTRETINOIN
     Indication: ACNE
     Dosage: 20 MILLIGRAM, QD
     Dates: start: 20180830, end: 20180917
  3. ACCUTANE [Suspect]
     Active Substance: ISOTRETINOIN
     Dosage: 40 (UNIT NOT REPORTED) BID (THIRD AND FOURTH DOSE)
  4. ACCUTANE [Suspect]
     Active Substance: ISOTRETINOIN
     Dosage: 20 (UNIT NOT REPORTED) QOD
     Dates: end: 20181001
  5. MYORISAN [Suspect]
     Active Substance: ISOTRETINOIN
     Indication: ACNE
     Dosage: 20 MILLIGRAM, Q2D
     Dates: start: 20181106, end: 20181126
  6. CLARAVIS [Suspect]
     Active Substance: ISOTRETINOIN
     Indication: ACNE
     Dosage: 40 MILLIGRAM, BID
     Route: 065
     Dates: start: 20180710, end: 20180717
  7. ACCUTANE [Suspect]
     Active Substance: ISOTRETINOIN
     Indication: PRODUCT USED FOR UNKNOWN INDICATION
     Dosage: 40 (UNIT NOT REPORTED), QD (FIRST DOSE)
     Dates: start: 20180709
  8. ARIPIPRAZOLE. [Concomitant]
     Active Substance: ARIPIPRAZOLE
     Dosage: UNK MILLIGRAM
  9. LUPRON [Concomitant]
     Active Substance: LEUPROLIDE ACETATE
     Dosage: UNK
     Route: 030
  10. MYORISAN [Suspect]
     Active Substance: ISOTRETINOIN
     Indication: ACNE
     Dosage: UNK
     Route: 065
     Dates: start: 20180307, end: 20181126
  11. CLARAVIS [Suspect]
     Active Substance: ISOTRETINOIN
     Dosage: 40 MILLIGRAM, BID
     Route: 065
     Dates: start: 20180717, end: 201808
  12. ACCUTANE [Suspect]
     Active Substance: ISOTRETINOIN
     Dosage: 40+30 UNIT NOT REPORTED (SECOND DOSE)
  13. MYORISAN [Suspect]
     Active Substance: ISOTRETINOIN
     Dosage: UNK
     Dates: start: 20180709, end: 20181001
  14. ADDERALL [Concomitant]
     Active Substance: AMPHETAMINE ASPARTATE\AMPHETAMINE SULFATE\DEXTROAMPHETAMINE SACCHARATE\DEXTROAMPHETAMINE SULFATE
     Dosage: UNK MILLIGRAM
  15. DULOXETINE. [Concomitant]
     Active Substance: DULOXETINE
     Dosage: UNK MILLIGRAM
  16. MYORISAN [Suspect]
     Active Substance: ISOTRETINOIN
     Dosage: UNK
     Dates: start: 20180709, end: 20181001
  17. CLARAVIS [Suspect]
     Active Substance: ISOTRETINOIN
     Indication: ACNE
     Dosage: UNK
     Dates: start: 20180409, end: 20181126
  18. ISOTRETINOIN. [Suspect]
     Active Substance: ISOTRETINOIN
     Dosage: 20 MILLIGRAM, Q2D
     Dates: start: 20180917, end: 20181126

REACTIONS (4)
  - Blood cholesterol increased [Unknown]
  - Depression [Unknown]
  - Blood creatine phosphokinase increased [Recovering/Resolving]
  - Blood triglycerides increased [Unknown]

NARRATIVE: CASE EVENT DATE: 2018
